FAERS Safety Report 17408887 (Version 1)
Quarter: 2020Q1

REPORT INFORMATION
  Report Type: Spontaneous
  Country: US (occurrence: US)
  Receive Date: 20200212
  Receipt Date: 20200212
  Transmission Date: 20200409
  Serious: No
  Sender: FDA-Public Use
  Company Number: US-AKRON, INC.-2080190

PATIENT
  Sex: Female

DRUGS (1)
  1. LOTEPREDNOL ETABONATE OPHTHALMIC SUSPENSION [Suspect]
     Active Substance: LOTEPREDNOL ETABONATE
     Route: 047

REACTIONS (3)
  - Swelling face [Unknown]
  - Ocular hyperaemia [Unknown]
  - Eye pruritus [Unknown]
